FAERS Safety Report 19951458 (Version 3)
Quarter: 2021Q4

REPORT INFORMATION
  Report Type: Spontaneous
  Country: DE (occurrence: DE)
  Receive Date: 20211014
  Receipt Date: 20211118
  Transmission Date: 20220304
  Serious: Yes (Other)
  Sender: FDA-Public Use
  Company Number: DE-NAPPMUNDI-GBR-2021-0090903

PATIENT
  Sex: Male

DRUGS (18)
  1. IBUPROFEN [Suspect]
     Active Substance: IBUPROFEN
     Indication: Pain
     Dosage: UNK
     Route: 065
  2. IBUPROFEN [Suspect]
     Active Substance: IBUPROFEN
     Indication: Pain
  3. OXYCODONE HYDROCHLORIDE [Suspect]
     Active Substance: OXYCODONE HYDROCHLORIDE
     Indication: Analgesic therapy
     Dosage: STRENGTH 40 MG
     Route: 065
     Dates: start: 202006
  4. OXYCODONE HYDROCHLORIDE [Suspect]
     Active Substance: OXYCODONE HYDROCHLORIDE
     Indication: Pain
     Dosage: STRENGTH 20 MG
     Route: 065
  5. OXYCODONE HYDROCHLORIDE [Suspect]
     Active Substance: OXYCODONE HYDROCHLORIDE
     Dosage: STRENGTH 10 MG
     Route: 065
     Dates: start: 202012
  6. NALOXONE HYDROCHLORIDE\OXYCODONE HYDROCHLORIDE [Interacting]
     Active Substance: NALOXONE HYDROCHLORIDE\OXYCODONE HYDROCHLORIDE
     Indication: Pain
     Dosage: 2 DOSAGE FORM, ONCE A DAY (UP TO 100-120 MG 2X/DAY (BID) )
     Route: 048
     Dates: start: 2018
  7. NALOXONE HYDROCHLORIDE\OXYCODONE HYDROCHLORIDE [Interacting]
     Active Substance: NALOXONE HYDROCHLORIDE\OXYCODONE HYDROCHLORIDE
     Dosage: UNK, ONCE A DAY (UNK, 2X/DAY)
     Route: 065
  8. PREGABALIN [Interacting]
     Active Substance: PREGABALIN
     Indication: Analgesic therapy
     Dosage: UNK
     Route: 065
  9. PREGABALIN [Interacting]
     Active Substance: PREGABALIN
     Indication: Pain
  10. CANNABIS SATIVA SUBSP. INDICA TOP [Suspect]
     Active Substance: CANNABIS SATIVA SUBSP. INDICA TOP
     Indication: Neuralgia
     Dosage: MOUTH SPRAY
     Route: 048
     Dates: start: 2021
  11. ACETAMINOPHEN [Suspect]
     Active Substance: ACETAMINOPHEN
     Indication: Pain
     Dosage: UNK
     Route: 065
  12. ACETAMINOPHEN [Suspect]
     Active Substance: ACETAMINOPHEN
     Indication: Pain
  13. OXYCODONE [Interacting]
     Active Substance: OXYCODONE
     Indication: Pain
     Dosage: UNK
     Route: 065
     Dates: start: 202012
  14. OXYCODONE [Interacting]
     Active Substance: OXYCODONE
     Indication: Product used for unknown indication
     Dosage: UNK
     Route: 065
  15. OXYCODONE [Interacting]
     Active Substance: OXYCODONE
     Indication: Product used for unknown indication
     Dosage: UNK
     Route: 065
     Dates: start: 202006
  16. CLONIDINE [Concomitant]
     Active Substance: CLONIDINE
     Indication: Product used for unknown indication
     Dosage: UNK
     Route: 065
  17. METAMIZOLE [Concomitant]
     Active Substance: METAMIZOLE
     Indication: Product used for unknown indication
     Dosage: UNK, AS NECESSARY (PRN (ON AN AS NEEDED-BASE), UNK, AS NEEDED)
     Route: 065
  18. NAPROXEN [Concomitant]
     Active Substance: NAPROXEN
     Indication: Prophylaxis against gastrointestinal ulcer
     Dosage: UNK
     Route: 065

REACTIONS (14)
  - Drug withdrawal syndrome [Recovering/Resolving]
  - Impaired quality of life [Recovering/Resolving]
  - Labelled drug-drug interaction issue [Unknown]
  - Drug dependence [Recovered/Resolved]
  - Inadequate analgesia [Unknown]
  - Drug withdrawal maintenance therapy [Unknown]
  - Hyperhidrosis [Recovering/Resolving]
  - Decreased activity [Recovering/Resolving]
  - Somnolence [Recovering/Resolving]
  - Gastrointestinal disorder [Recovering/Resolving]
  - Social problem [Recovering/Resolving]
  - Anxiety [Recovering/Resolving]
  - Loss of libido [Recovering/Resolving]
  - Malaise [Recovering/Resolving]
